FAERS Safety Report 9165872 (Version 3)
Quarter: 2013Q3

REPORT INFORMATION
  Report Type: Spontaneous
  Country: US (occurrence: None)
  Receive Date: 20130304
  Receipt Date: 20130705
  Transmission Date: 20140515
  Serious: Yes (Other)
  Sender: FDA-Public Use
  Company Number: ACO_34518_2013

PATIENT
  Age: 52 Year
  Sex: Male

DRUGS (13)
  1. AMPYRA [Suspect]
     Indication: PRODUCT USED FOR UNKNOWN INDICATION
     Dates: start: 20120530, end: 20130220
  2. AMPYRA [Suspect]
     Indication: GAIT DISTURBANCE
     Dates: start: 20120530, end: 20130220
  3. TIZANIDINE [Concomitant]
  4. FLOMAX [Concomitant]
  5. PRAVASTATIN [Concomitant]
  6. PRASUGREL [Concomitant]
  7. METOPROLOL [Concomitant]
  8. METFORMIN ER [Concomitant]
  9. LISINOPRIL [Concomitant]
  10. COPAXONE [Concomitant]
  11. BACLOFEN [Concomitant]
  12. ASA [Concomitant]
  13. AMITRIPTYLINE HCL [Concomitant]

REACTIONS (4)
  - Loss of consciousness [None]
  - Carotid artery occlusion [None]
  - Normochromic normocytic anaemia [None]
  - Dizziness [None]
